FAERS Safety Report 13086978 (Version 1)
Quarter: 2017Q1

REPORT INFORMATION
  Report Type: Report from Study
  Country: CA (occurrence: CA)
  Receive Date: 20170105
  Receipt Date: 20170105
  Transmission Date: 20170428
  Serious: Yes (Other)
  Sender: FDA-Public Use
  Company Number: CA-AMGEN-CANSL2017000553

PATIENT
  Age: 24 Year
  Sex: Female

DRUGS (2)
  1. PRAVASTATIN. [Concomitant]
     Active Substance: PRAVASTATIN
     Dosage: UNK
  2. REPATHA [Suspect]
     Active Substance: EVOLOCUMAB
     Indication: TYPE IIA HYPERLIPIDAEMIA
     Dosage: 140 MG/ML, UNK
     Route: 065
     Dates: start: 201608

REACTIONS (6)
  - Gastric ulcer [Unknown]
  - Injection site bruising [Recovering/Resolving]
  - Injection site induration [Not Recovered/Not Resolved]
  - Injection site rash [Unknown]
  - Injection site swelling [Not Recovered/Not Resolved]
  - Injection site pruritus [Unknown]

NARRATIVE: CASE EVENT DATE: 20161227
